FAERS Safety Report 8789612 (Version 1)
Quarter: 2012Q4

REPORT INFORMATION
  Report Type: Spontaneous
  Country: US (occurrence: None)
  Receive Date: 20120910
  Receipt Date: 20120910
  Transmission Date: 20130627
  Serious: No
  Sender: FDA-Public Use
  Company Number: None

PATIENT
  Age: 65 Year
  Sex: Male
  Weight: 78.93 kg

DRUGS (2)
  1. TEKTURNA [Suspect]
     Indication: BLOOD PRESSURE
     Dates: start: 2011, end: 201208
  2. TEKTURNA [Suspect]
     Indication: BLOOD PRESSURE

REACTIONS (6)
  - Myalgia [None]
  - Arthralgia [None]
  - Depression [None]
  - Headache [None]
  - Blood pressure fluctuation [None]
  - General physical health deterioration [None]
